FAERS Safety Report 7672974-7 (Version None)
Quarter: 2011Q3

REPORT INFORMATION
  Report Type: 
  Country: None (occurrence: None)
  Receive Date: 20110809
  Receipt Date: 20110802
  Transmission Date: 20111222
  Serious: Yes (Hospitalization)
  Sender: FDA-Public Use
  Company Number: JP-BAYER-2011-066066

PATIENT
  Age: 51 Year
  Sex: Female
  Weight: 68 kg

DRUGS (11)
  1. DIGOXIN [Suspect]
     Dosage: DAILY DOSE .25 MG
     Route: 048
     Dates: start: 20110709, end: 20110721
  2. CRESTOR [Suspect]
     Indication: HYPERLIPIDAEMIA
     Dosage: DAILY DOSE 2.5 MG
     Route: 048
     Dates: start: 20110709, end: 20110721
  3. ISOSORBIDE DINITRATE [Suspect]
     Dosage: DAILY DOSE 40 MG
     Route: 062
     Dates: start: 20110709, end: 20110721
  4. ALLOPURINOL [Suspect]
     Indication: HYPERURICAEMIA
     Dosage: DAILY DOSE 200 MG
     Route: 048
     Dates: start: 20110709, end: 20110721
  5. SPIRONOLACTONE [Suspect]
     Indication: HYPERTENSION
     Dosage: DAILY DOSE 25 MG
     Route: 048
     Dates: start: 20110709, end: 20110721
  6. ALISKIREN [Suspect]
     Dosage: DAILY DOSE 150 MG
     Route: 048
     Dates: start: 20110709, end: 20110721
  7. VILDAGLIPTIN [Suspect]
     Dosage: UNK
     Route: 048
     Dates: start: 20110709, end: 20110721
  8. ASPIRIN [Suspect]
     Dosage: DAILY DOSE 100 MG
     Route: 048
     Dates: start: 20110709, end: 20110721
  9. RENIN-ANGIOTENSIN SYSTEM, AGENTS ACTING ON [Suspect]
     Dosage: UNK
     Route: 048
     Dates: start: 20110709, end: 20110721
  10. AZELNIDIPINE [Suspect]
     Dosage: UNK
     Route: 048
     Dates: start: 20110709, end: 20110721
  11. EPARA [Suspect]
     Indication: HYPERLIPIDAEMIA
     Dosage: DAILY DOSE 1800 MG
     Route: 048
     Dates: start: 20110709, end: 20110721

REACTIONS (3)
  - RASH [None]
  - RENAL FAILURE CHRONIC [None]
  - PYREXIA [None]
